FAERS Safety Report 7296980-X (Version None)
Quarter: 2011Q1

REPORT INFORMATION
  Report Type: 
  Country: None (occurrence: None)
  Receive Date: 20110216
  Receipt Date: 20110209
  Transmission Date: 20110831
  Serious: Yes (Hospitalization)
  Sender: FDA-Public Use
  Company Number: CN-SANOFI-AVENTIS-2010SA078426

PATIENT
  Age: 65 Year
  Sex: Male
  Weight: 59 kg

DRUGS (3)
  1. HUMULIN R [Concomitant]
     Indication: DIABETES MELLITUS
     Route: 058
     Dates: start: 20101007
  2. SOLOSTAR [Suspect]
  3. LANTUS [Suspect]
     Indication: DIABETES MELLITUS
     Route: 058
     Dates: start: 20101007

REACTIONS (6)
  - KETOACIDOSIS [None]
  - DIZZINESS [None]
  - HYPERGLYCAEMIA [None]
  - DRY MOUTH [None]
  - DRUG INEFFECTIVE [None]
  - HYPOGLYCAEMIA [None]
